FAERS Safety Report 8231074-8 (Version None)
Quarter: 2012Q1

REPORT INFORMATION
  Report Type: 
  Country: None (occurrence: None)
  Receive Date: 20120323
  Receipt Date: 20120316
  Transmission Date: 20120608
  Serious: Yes (Hospitalization)
  Sender: FDA-Public Use
  Company Number: US-BAYER-2012-026773

PATIENT
  Age: 24 Year
  Sex: Female
  Weight: 113.38 kg

DRUGS (7)
  1. VANCOMYCIN [Concomitant]
     Indication: CELLULITIS
  2. PERCOCET [Concomitant]
  3. CLINDAMYCIN [Concomitant]
  4. LEVOTHYROXINE SODIUM [Concomitant]
     Indication: HYPOTHYROIDISM
     Dosage: 100 ?G, UNK
     Route: 048
     Dates: start: 20081015
  5. YAZ [Suspect]
     Dosage: UNK
     Dates: end: 20081030
  6. YASMIN [Suspect]
  7. KEFLEX [Concomitant]
     Indication: CELLULITIS
     Dosage: UNK
     Dates: start: 20081001

REACTIONS (1)
  - DEEP VEIN THROMBOSIS [None]
